FAERS Safety Report 10021372 (Version 1)
Quarter: 2014Q1

REPORT INFORMATION
  Report Type: Spontaneous
  Country: ES (occurrence: ES)
  Receive Date: 20140319
  Receipt Date: 20140319
  Transmission Date: 20141002
  Serious: Yes (Other)
  Sender: FDA-Public Use
  Company Number: ES-MYLANLABS-2014S1005294

PATIENT
  Age: 69 Year
  Sex: Male

DRUGS (3)
  1. NITROFURANTOIN [Suspect]
     Indication: URINARY TRACT INFECTION
     Route: 065
  2. NORFLOXACIN [Concomitant]
     Indication: URINARY TRACT INFECTION
     Route: 065
  3. OFLOXACIN [Concomitant]
     Indication: URINARY TRACT INFECTION
     Route: 065

REACTIONS (4)
  - Organising pneumonia [Recovering/Resolving]
  - Organising pneumonia [Recovering/Resolving]
  - Asthenia [Unknown]
  - Cough [Unknown]
